FAERS Safety Report 8576474-1 (Version None)
Quarter: 2012Q3

REPORT INFORMATION
  Report Type: 
  Country: None (occurrence: None)
  Receive Date: 20120807
  Receipt Date: 20120723
  Transmission Date: 20120928
  Serious: Yes (Other)
  Sender: FDA-Public Use
  Company Number: PT-ROCHE-1091876

PATIENT
  Sex: Male

DRUGS (5)
  1. LEUCOVORIN CALCIUM [Suspect]
     Indication: COLON CANCER
     Route: 065
     Dates: start: 20100401
  2. AVASTIN [Suspect]
     Indication: COLON CANCER
     Route: 065
     Dates: start: 20100401
  3. IRINOTECAN HCL [Suspect]
     Indication: COLON CANCER
     Route: 065
     Dates: start: 20100401
  4. FLUOROURACIL [Suspect]
     Indication: COLON CANCER
     Route: 065
     Dates: start: 20100401
  5. OXALIPLATIN [Suspect]
     Indication: COLON CANCER
     Route: 065
     Dates: start: 20120101

REACTIONS (3)
  - PERIPHERAL SENSORY NEUROPATHY [None]
  - HYPERTENSION [None]
  - METASTASES TO LUNG [None]
